FAERS Safety Report 13822535 (Version 3)
Quarter: 2017Q3

REPORT INFORMATION
  Report Type: Spontaneous
  Country: US (occurrence: US)
  Receive Date: 20170801
  Receipt Date: 20170829
  Transmission Date: 20171127
  Serious: Yes (Death, Other)
  Sender: FDA-Public Use
  Company Number: US-BRISTOL-MYERS SQUIBB COMPANY-BMS-2017-068526

PATIENT
  Sex: Male
  Weight: 141 kg

DRUGS (3)
  1. ZOMETA [Suspect]
     Active Substance: ZOLEDRONIC ACID
     Indication: PRODUCT USED FOR UNKNOWN INDICATION
     Dosage: UNK
     Route: 065
  2. OPDIVO [Suspect]
     Active Substance: NIVOLUMAB
     Indication: METASTATIC MALIGNANT MELANOMA
     Dosage: 61 MG, Q3WK
     Route: 042
     Dates: start: 20160929, end: 20160929
  3. YERVOY [Suspect]
     Active Substance: IPILIMUMAB
     Indication: METASTATIC MALIGNANT MELANOMA
     Dosage: 185 MG, Q3WK
     Route: 042
     Dates: start: 20160929, end: 20160929

REACTIONS (6)
  - Malignant neoplasm progression [Fatal]
  - Memory impairment [Unknown]
  - Rash pruritic [Recovered/Resolved]
  - Diarrhoea [Unknown]
  - Nausea [Unknown]
  - Confusional state [Unknown]
